FAERS Safety Report 22354733 (Version 1)
Quarter: 2023Q2

REPORT INFORMATION
  Report Type: Spontaneous
  Country: US (occurrence: None)
  Receive Date: 20230522
  Receipt Date: 20230522
  Transmission Date: 20230721
  Serious: Yes (Hospitalization)
  Sender: FDA-Public Use
  Company Number: None

PATIENT
  Age: 37 Year
  Sex: Female

DRUGS (1)
  1. AJOVY [Suspect]
     Active Substance: FREMANEZUMAB-VFRM
     Indication: Migraine with aura
     Dosage: OTHER FREQUENCY : ONCE A MONTH;?
     Route: 058

REACTIONS (3)
  - Splenectomy [None]
  - Splenic neoplasm malignancy unspecified [None]
  - Pneumonia [None]
